FAERS Safety Report 12113063 (Version 1)
Quarter: 2016Q1

REPORT INFORMATION
  Report Type: Spontaneous
  Country: PL (occurrence: PL)
  Receive Date: 20160225
  Receipt Date: 20160225
  Transmission Date: 20160526
  Serious: Yes (Other)
  Sender: FDA-Public Use
  Company Number: PL-ROCHE-1714719

PATIENT
  Age: 30 Year
  Sex: Female

DRUGS (7)
  1. XELODA [Suspect]
     Active Substance: CAPECITABINE
     Indication: METASTASES TO LUNG
  2. LAPATINIB [Suspect]
     Active Substance: LAPATINIB
     Indication: BREAST CANCER
     Route: 065
     Dates: start: 201405
  3. HERCEPTIN [Suspect]
     Active Substance: TRASTUZUMAB
     Indication: BREAST CANCER
     Dosage: 18 ADMINISTRATIONS
     Route: 065
     Dates: start: 201201
  4. ADRIAMYCIN [Suspect]
     Active Substance: DOXORUBICIN HYDROCHLORIDE
     Indication: BREAST CANCER
     Dosage: 6 COURSES OF CHEMOTHERAPHY
     Route: 065
     Dates: start: 201102
  5. XELODA [Suspect]
     Active Substance: CAPECITABINE
     Indication: BREAST CANCER
     Route: 065
     Dates: start: 201405
  6. TAXOL [Suspect]
     Active Substance: PACLITAXEL
     Indication: BREAST CANCER
     Dosage: 6 COURSES OF CHEMOTHERAPY
     Route: 065
     Dates: start: 201102
  7. LAPATINIB [Suspect]
     Active Substance: LAPATINIB
     Indication: METASTASES TO LUNG

REACTIONS (4)
  - Metastases to lymph nodes [Unknown]
  - General physical health deterioration [Unknown]
  - Impaired healing [Recovered/Resolved]
  - Metastases to lung [Unknown]

NARRATIVE: CASE EVENT DATE: 201310
